FAERS Safety Report 10412811 (Version 1)
Quarter: 2014Q3

REPORT INFORMATION
  Report Type: Report from Study
  Country: ZA (occurrence: ZA)
  Receive Date: 20140827
  Receipt Date: 20140827
  Transmission Date: 20150326
  Serious: Yes (Hospitalization, Other)
  Sender: FDA-Public Use
  Company Number: ZA-BAYER-2014-077114

PATIENT
  Sex: Female

DRUGS (1)
  1. BETAFERON [Suspect]
     Active Substance: INTERFERON BETA-1B
     Dosage: UNK
     Dates: start: 201001

REACTIONS (13)
  - Malaise [None]
  - Multiple sclerosis relapse [Recovering/Resolving]
  - Motor dysfunction [Recovering/Resolving]
  - Dizziness [None]
  - Insomnia [None]
  - Muscular weakness [None]
  - Adverse drug reaction [None]
  - Loss of consciousness [None]
  - Fall [None]
  - Weight increased [None]
  - Injection site reaction [None]
  - Injection site pain [None]
  - Visual impairment [None]

NARRATIVE: CASE EVENT DATE: 2010
